FAERS Safety Report 9439341 (Version 1)
Quarter: 2013Q3

REPORT INFORMATION
  Report Type: Spontaneous
  Country: US (occurrence: US)
  Receive Date: 20130805
  Receipt Date: 20130805
  Transmission Date: 20140515
  Serious: Yes (Other)
  Sender: FDA-Public Use
  Company Number: US-ELI_LILLY_AND_COMPANY-US201307008277

PATIENT
  Sex: Female
  Weight: 74.83 kg

DRUGS (7)
  1. CYMBALTA [Suspect]
     Indication: DEPRESSION
     Dosage: 5 MG, QD
     Route: 065
     Dates: start: 2007
  2. CYMBALTA [Suspect]
     Dosage: 60 MG, QD
     Route: 065
     Dates: start: 2012
  3. CYMBALTA [Suspect]
     Dosage: 80 MG, QD
     Route: 065
  4. LYRICA [Suspect]
     Indication: PAIN
     Dosage: 300 MG, BID
     Route: 065
     Dates: start: 2007
  5. CELEBREX [Suspect]
     Indication: PAIN
     Dosage: 200 MG, QD
     Route: 065
  6. LOPID [Suspect]
     Indication: BLOOD CHOLESTEROL
     Dosage: 600 MG, BID
     Route: 065
  7. LISINOPRIL [Concomitant]
     Indication: BLOOD PRESSURE
     Dosage: 10 MG, QD
     Route: 065

REACTIONS (1)
  - Dementia [Not Recovered/Not Resolved]
